FAERS Safety Report 9022279 (Version 1)
Quarter: 2013Q1

REPORT INFORMATION
  Report Type: Spontaneous
  Country: TR (occurrence: TR)
  Receive Date: 20130118
  Receipt Date: 20130118
  Transmission Date: 20140127
  Serious: Yes (Other)
  Sender: FDA-Public Use
  Company Number: TR-AMGEN-TURSP2012064991

PATIENT
  Age: 55 Year
  Sex: Female

DRUGS (3)
  1. ENBREL [Suspect]
     Indication: ANKYLOSING SPONDYLITIS
     Dosage: 50 MG, WEEKLY ( POWDER FOR SOLUTION FOR INJECTION)
     Route: 058
     Dates: start: 2005, end: 20110711
  2. ENBREL [Suspect]
     Dosage: 50 MG, WEEKLY (PRE-FILLED PEN)
     Route: 058
     Dates: start: 20110711
  3. ENBREL [Suspect]
     Dosage: 50 MG, QWK ( POWDER FOR SOLUTION FOR INJECTION)
     Route: 058
     Dates: start: 20110111, end: 201301

REACTIONS (2)
  - Laceration [Recovered/Resolved]
  - Tooth infection [Recovered/Resolved]
